FAERS Safety Report 5961948-X (Version None)
Quarter: 2008Q4

REPORT INFORMATION
  Report Type: 
  Country: None (occurrence: None)
  Receive Date: 20081121
  Receipt Date: 20081114
  Transmission Date: 20090506
  Serious: Yes (Hospitalization)
  Sender: FDA-Public Use
  Company Number: CA-AMGEN-US275937

PATIENT
  Sex: Male
  Weight: 119.2 kg

DRUGS (8)
  1. ROMIPLOSTIM [Suspect]
     Indication: IDIOPATHIC THROMBOCYTOPENIC PURPURA
     Route: 058
     Dates: start: 20070914
  2. ROMIPLOSTIM [Suspect]
     Route: 058
     Dates: start: 20070914, end: 20080411
  3. OXYCODONE HCL [Concomitant]
     Route: 048
     Dates: start: 20030101
  4. AVALIDE [Concomitant]
     Route: 048
     Dates: start: 20071110
  5. ACETAMINOPHEN [Concomitant]
     Route: 048
     Dates: start: 20080207
  6. LYRICA [Concomitant]
     Route: 048
     Dates: start: 20080229
  7. NABILONE [Concomitant]
     Route: 048
     Dates: start: 20080229
  8. METHADONE HCL [Concomitant]
     Route: 048

REACTIONS (3)
  - GASTROENTERITIS VIRAL [None]
  - PLEURAL EFFUSION [None]
  - PULMONARY EMBOLISM [None]
